FAERS Safety Report 13342065 (Version 1)
Quarter: 2017Q1

REPORT INFORMATION
  Report Type: Spontaneous
  Country: ES (occurrence: ES)
  Receive Date: 20170316
  Receipt Date: 20170316
  Transmission Date: 20170428
  Serious: Yes (Hospitalization)
  Sender: FDA-Public Use
  Company Number: ES-GLENMARK PHARMACEUTICALS-2017GMK026766

PATIENT
  Age: 49 Year
  Sex: Male

DRUGS (6)
  1. PAROXETINE. [Concomitant]
     Active Substance: PAROXETINE
     Indication: PRODUCT USED FOR UNKNOWN INDICATION
     Dosage: UNK
     Route: 065
  2. GABAPENTIN TABLETS [Suspect]
     Active Substance: GABAPENTIN
     Indication: BACK PAIN
     Dosage: 600 MG, EVERY 8 HOURS
     Route: 065
  3. EPROSARTAN [Concomitant]
     Active Substance: EPROSARTAN
     Indication: HYPERTENSION
     Dosage: UNK
     Route: 065
  4. DISULFIRAM. [Concomitant]
     Active Substance: DISULFIRAM
     Indication: PRODUCT USED FOR UNKNOWN INDICATION
     Dosage: UNK
     Route: 065
  5. BISOPROLOL [Concomitant]
     Active Substance: BISOPROLOL
     Indication: HYPERTENSION
     Dosage: UNK
     Route: 065
  6. MIANSERIN [Concomitant]
     Active Substance: MIANSERIN
     Indication: PRODUCT USED FOR UNKNOWN INDICATION
     Dosage: UNK
     Route: 065

REACTIONS (8)
  - Encephalopathy [Recovering/Resolving]
  - Intentional product use issue [Unknown]
  - Rhabdomyolysis [Recovering/Resolving]
  - Acute kidney injury [Recovering/Resolving]
  - Delirium [Recovered/Resolved]
  - Myoclonus [Recovering/Resolving]
  - Hyperkalaemia [Recovering/Resolving]
  - Metabolic acidosis [Recovered/Resolved]
